FAERS Safety Report 16899119 (Version 3)
Quarter: 2019Q4

REPORT INFORMATION
  Report Type: Spontaneous
  Country: US (occurrence: US)
  Receive Date: 20191009
  Receipt Date: 20191230
  Transmission Date: 20200122
  Serious: Yes (Hospitalization, Other)
  Sender: FDA-Public Use
  Company Number: US-PFIZER INC-2017065921

PATIENT
  Age: 61 Year
  Sex: Female
  Weight: 100 kg

DRUGS (28)
  1. PRAVASTINE [Concomitant]
     Active Substance: PRAVASTATIN SODIUM
     Dosage: 40 MG, 1X/DAY (1 TAB(S) PO Q PM)
     Route: 048
  2. LASIX [Concomitant]
     Active Substance: FUROSEMIDE
     Dosage: 10 MG, DAILY (1/2 TAB(S) DAILY)
     Route: 048
  3. MAXZIDE [Concomitant]
     Active Substance: HYDROCHLOROTHIAZIDE\TRIAMTERENE
     Dosage: UNK, 1X/DAY (75MG-50MG, 1TAB QDAY)
     Route: 048
     Dates: start: 20150113
  4. ALKA SELTZER [ACETYLSALICYLIC ACID;CITRIC ACID;SODIUM BICARBONATE] [Concomitant]
     Dosage: UNK
  5. AMLODIPINE [Concomitant]
     Active Substance: AMLODIPINE BESYLATE
     Indication: CARDIAC DISORDER
     Dosage: UNK [5 MG 1/2 AM]
  6. OMEPRAZOLE. [Concomitant]
     Active Substance: OMEPRAZOLE
     Dosage: UNK
  7. VITAMIN B COMPLEX [Concomitant]
     Active Substance: CYANOCOBALAMIN\DEXPANTHENOL\NIACINAMIDE\PYRIDOXINE HYDROCHLORIDE\RIBOFLAVIN 5^-PHOSPHATE SODIUM\THIAMINE HYDROCHLORIDE\VITAMIN B COMPLEX
     Dosage: UNK
  8. VENTOLIN [Concomitant]
     Active Substance: ALBUTEROL SULFATE
     Dosage: UNK
  9. HYDROCHLOROTHIAZIDE WITH TRIAMTERENE [Concomitant]
     Active Substance: HYDROCHLOROTHIAZIDE\TRIAMTERENE
     Dosage: 1 DF, 1X/DAY (AM)
     Route: 048
  10. TIZANIDINE. [Concomitant]
     Active Substance: TIZANIDINE
     Dosage: 4 MG, 1X/DAY (1 TAB(S) 2AM,2QHS)
     Route: 048
  11. HUMALOG [Concomitant]
     Active Substance: INSULIN LISPRO
     Dosage: UNK(QAM: 60 UNITS; QNOON: 60 UNITS QPM: 60 UNITS)
  12. SYNTHROID [Concomitant]
     Active Substance: LEVOTHYROXINE SODIUM
     Dosage: 125 UG, UNK (2 TAB(S))
     Route: 048
     Dates: start: 20150113
  13. LANTUS [Concomitant]
     Active Substance: INSULIN GLARGINE
     Dosage: UNK, DAILY (100 UNIT/ML SOLUTION; DOSAGE 90-UNIT SUB-Q DAILY)
     Route: 058
  14. NITROGLYCERIN. [Concomitant]
     Active Substance: NITROGLYCERIN
     Indication: CARDIAC DISORDER
     Dosage: UNK, AS NEEDED [1 PRN UNDER TONGUE]
     Route: 060
  15. NORVASC [Concomitant]
     Active Substance: AMLODIPINE BESYLATE
     Dosage: 10 MG, 1X/DAY (1 TABS(S) PO Q.PM)
     Route: 048
  16. ZOFRAN [Concomitant]
     Active Substance: ONDANSETRON HYDROCHLORIDE
     Indication: NAUSEA
     Dosage: 4 MG, AS NEEDED (1 TAB PO; Q4H PRN)
     Route: 048
     Dates: start: 20160615
  17. LYRICA [Suspect]
     Active Substance: PREGABALIN
     Indication: NEUROPATHY PERIPHERAL
     Dosage: 100 MG, 2X/DAY (1 AM, 1 PM)
     Route: 048
     Dates: start: 20171109
  18. LYRICA [Suspect]
     Active Substance: PREGABALIN
     Indication: FIBROMYALGIA
  19. ESTRADIOL. [Concomitant]
     Active Substance: ESTRADIOL
     Dosage: 2 MG, DAILY
     Route: 048
  20. MIDRIN [DICHLORALPHENAZONE;ISOMETHEPTENE;PARACETAMOL] [Concomitant]
     Indication: HEADACHE
     Dosage: UNK (2 PO AT ONSET OF HEADACHE)
     Route: 048
     Dates: start: 20161215
  21. TOPAMAX [Concomitant]
     Active Substance: TOPIRAMATE
     Indication: MIGRAINE
     Dosage: 100 MG, 3X/DAY(1 TAB(S) TID)
     Route: 048
     Dates: start: 20131220
  22. NOVOLIN R [Concomitant]
     Active Substance: INSULIN HUMAN
     Dosage: UNK
  23. HUMULIN N [Concomitant]
     Active Substance: INSULIN HUMAN
     Dosage: UNK
  24. LISINOPRIL AND HYDROCHLOROTHIAZIDE [Concomitant]
     Active Substance: HYDROCHLOROTHIAZIDE\LISINOPRIL
     Dosage: UNK
  25. METOPROLOL. [Concomitant]
     Active Substance: METOPROLOL
     Dosage: UNK
  26. DOXEPIN [Concomitant]
     Active Substance: DOXEPIN
     Dosage: 100 MG, 1X/DAY (1 CAP PO QHS)
     Route: 048
     Dates: start: 20150126
  27. ZOFRAN [Concomitant]
     Active Substance: ONDANSETRON HYDROCHLORIDE
     Indication: VOMITING
  28. ZOLOFT [Concomitant]
     Active Substance: SERTRALINE HYDROCHLORIDE
     Indication: DEPRESSION
     Dosage: 100 MG, DAILY
     Route: 048

REACTIONS (7)
  - Vocal cord paralysis [Recovered/Resolved]
  - Anaemia [Not Recovered/Not Resolved]
  - Infection [Unknown]
  - Arteriovenous malformation [Not Recovered/Not Resolved]
  - Cardiac failure congestive [Not Recovered/Not Resolved]
  - Gastrointestinal haemorrhage [Unknown]
  - Dyspnoea [Unknown]

NARRATIVE: CASE EVENT DATE: 2018
